FAERS Safety Report 6221205-3 (Version None)
Quarter: 2009Q2

REPORT INFORMATION
  Report Type: 
  Country: None (occurrence: None)
  Receive Date: 20090610
  Receipt Date: 20090527
  Transmission Date: 20091009
  Serious: Yes (Death)
  Sender: FDA-Public Use
  Company Number: US-ELI_LILLY_AND_COMPANY-US200905003875

PATIENT
  Sex: Male

DRUGS (4)
  1. ZYPREXA [Suspect]
     Indication: SCHIZOPHRENIA
     Dosage: 20 MG, DAILY (1/D)
     Dates: start: 20070101
  2. ZYPREXA [Suspect]
     Dosage: 5 MG, EACH MORNING
     Dates: start: 20070101, end: 20080613
  3. VALPROATE SODIUM [Concomitant]
     Dosage: 1000 MG, UNK
     Dates: start: 20070101
  4. PAXIL [Concomitant]
     Dosage: 40 MG, UNK
     Dates: start: 20070101

REACTIONS (2)
  - DEATH [None]
  - OVERDOSE [None]
